FAERS Safety Report 4796704-1 (Version None)
Quarter: 2005Q4

REPORT INFORMATION
  Report Type: 
  Country: None (occurrence: None)
  Receive Date: 20051003
  Receipt Date: 20041129
  Transmission Date: 20060501
  Serious: Yes (Other)
  Sender: FDA-Public Use
  Company Number: PHEH2004US12733

PATIENT
  Sex: Female

DRUGS (7)
  1. ESTALIS COMBIPATCH(ESTRADIOL, NORETHISTERONE ACETATE) TRANS-THERAPEUTI [Suspect]
     Dosage: TRANSDERMAL
     Route: 062
     Dates: start: 20010101, end: 20030101
  2. PREMARIN [Suspect]
  3. PREMPRO [Suspect]
  4. PREMPHASE (PREMARIN;CYCRIN 14/14) [Suspect]
  5. PROVERA [Suspect]
  6. MEDROXYPROGESTERONE ACETATE [Suspect]
  7. ESTROGENS SOL/INJ [Suspect]

REACTIONS (1)
  - OVARIAN CANCER [None]
